FAERS Safety Report 8461462 (Version 2)
Quarter: 2012Q4

REPORT INFORMATION
  Report Type: 
  Country: US (occurrence: US)
  Receive Date: 20120315
  Receipt Date: 20121205
  Transmission Date: 20130627
  Serious: Yes (Hospitalization)
  Sender: FDA-Public Use
  Company Number: US-ABBOTT-12P-163-0914711-00

PATIENT
  Sex: Male
  Weight: 95.34 kg

DRUGS (3)
  1. CLARITHROMYCIN [Suspect]
     Indication: HELICOBACTER INFECTION
     Route: 048
     Dates: start: 201202, end: 201202
  2. UNKNOWN CHEMOTHERAPY [Concomitant]
     Indication: LYMPHOMA
  3. RADIATION [Concomitant]
     Indication: LYMPHOMA

REACTIONS (3)
  - Jaundice [Recovered/Resolved]
  - Abdominal pain [Recovered/Resolved]
  - Blood bilirubin increased [Unknown]
